FAERS Safety Report 6633604-6 (Version None)
Quarter: 2010Q1

REPORT INFORMATION
  Report Type: 
  Country: None (occurrence: None)
  Receive Date: 20100312
  Receipt Date: 20091229
  Transmission Date: 20100710
  Serious: No
  Sender: FDA-Public Use
  Company Number: US-ABBOTT-10P-163-0617350-00

PATIENT
  Sex: Male
  Weight: 90.8 kg

DRUGS (1)
  1. ERYTHROMYCIN BASE [Suspect]
     Indication: SKIN DISORDER
     Dosage: 4 TIMES DAILY,28 TABLETS TOTAL HE TOOK
     Route: 048
     Dates: start: 20091201, end: 20091223

REACTIONS (4)
  - BLISTER [None]
  - PRURITUS [None]
  - RASH [None]
  - SWELLING FACE [None]
